FAERS Safety Report 5851907-X (Version None)
Quarter: 2008Q3

REPORT INFORMATION
  Report Type: 
  Country: None (occurrence: None)
  Receive Date: 20080819
  Receipt Date: 20080801
  Transmission Date: 20090109
  Serious: Yes (Hospitalization, Other)
  Sender: FDA-Public Use
  Company Number: ENT 2008-0130

PATIENT
  Sex: Male

DRUGS (1)
  1. ENTACAPONE [Suspect]
     Indication: PARKINSON'S DISEASE

REACTIONS (3)
  - COMA [None]
  - DRUG DOSE OMISSION [None]
  - SUDDEN ONSET OF SLEEP [None]
